FAERS Safety Report 7712965-0 (Version None)
Quarter: 2011Q3

REPORT INFORMATION
  Report Type: 
  Country: None (occurrence: None)
  Receive Date: 20110826
  Receipt Date: 20110815
  Transmission Date: 20111222
  Serious: Yes (Hospitalization)
  Sender: FDA-Public Use
  Company Number: TR-BRISTOL-MYERS SQUIBB COMPANY-15971922

PATIENT
  Age: 43 Year
  Sex: Male

DRUGS (3)
  1. INDOMETHACIN [Interacting]
     Indication: URINARY TRACT INFECTION
  2. WARFARIN SODIUM [Suspect]
     Indication: CARDIAC VALVE PROSTHESIS USER
  3. CEPHALOSPORIN [Interacting]
     Indication: URINARY TRACT INFECTION

REACTIONS (5)
  - DRUG INTERACTION [None]
  - INTERNATIONAL NORMALISED RATIO INCREASED [None]
  - RENAL HAEMATOMA [None]
  - VENTRICULAR FIBRILLATION [None]
  - RENAL FAILURE ACUTE [None]
